FAERS Safety Report 23811317 (Version 10)
Quarter: 2025Q2

REPORT INFORMATION
  Report Type: Report from Study
  Country: GB (occurrence: GB)
  Receive Date: 20240502
  Receipt Date: 20250628
  Transmission Date: 20250717
  Serious: Yes (Death, Hospitalization, Disabling, Other)
  Sender: CELLTRION
  Company Number: GB-CELLTRION INC.-2024GB005121

PATIENT

DRUGS (6)
  1. ADALIMUMAB-AATY [Suspect]
     Active Substance: ADALIMUMAB-AATY
     Indication: Psoriasis
     Dosage: 40 MG, Q2WEEKS
     Route: 058
  2. ADALIMUMAB-AATY [Suspect]
     Active Substance: ADALIMUMAB-AATY
     Dosage: YUFLYMA 40 MG, Q2WEEKS
     Route: 058
  3. ADALIMUMAB-AATY [Suspect]
     Active Substance: ADALIMUMAB-AATY
     Dosage: YUFLYMA 40 MG, Q2WEEKS
     Route: 058
  4. ADALIMUMAB-AATY [Suspect]
     Active Substance: ADALIMUMAB-AATY
     Dosage: YUFLYMA 40 MG, Q2WEEKS
     Route: 058
  5. ADALIMUMAB-AATY [Suspect]
     Active Substance: ADALIMUMAB-AATY
     Dosage: YUFLYMA 40 MG, Q2WEEKS
     Route: 058
  6. ADALIMUMAB-AATY [Suspect]
     Active Substance: ADALIMUMAB-AATY
     Dosage: 40MG EVERY 2 WEEKS
     Route: 058

REACTIONS (22)
  - Death [Fatal]
  - Emergency care [Unknown]
  - Hospitalisation [Not Recovered/Not Resolved]
  - Cardiac disorder [Unknown]
  - Endocarditis [Not Recovered/Not Resolved]
  - Infection susceptibility increased [Unknown]
  - Candida infection [Unknown]
  - Chest pain [Not Recovered/Not Resolved]
  - Urinary tract infection [Unknown]
  - Lower respiratory tract infection [Not Recovered/Not Resolved]
  - Dizziness [Not Recovered/Not Resolved]
  - Oral candidiasis [Not Recovered/Not Resolved]
  - Sepsis [Not Recovered/Not Resolved]
  - Pneumonia [Not Recovered/Not Resolved]
  - Cardiac failure [Not Recovered/Not Resolved]
  - Rib fracture [Unknown]
  - Fall [Not Recovered/Not Resolved]
  - Respiratory symptom [Not Recovered/Not Resolved]
  - Memory impairment [Not Recovered/Not Resolved]
  - Malaise [Not Recovered/Not Resolved]
  - Contusion [Not Recovered/Not Resolved]
  - Intentional dose omission [Unknown]

NARRATIVE: CASE EVENT DATE: 20250618
